FAERS Safety Report 16682569 (Version 1)
Quarter: 2019Q3

REPORT INFORMATION
  Report Type: Spontaneous
  Country: AR (occurrence: AR)
  Receive Date: 20190808
  Receipt Date: 20190808
  Transmission Date: 20191004
  Serious: Yes (Hospitalization, Other)
  Sender: FDA-Public Use
  Company Number: AR-ROCHE-2363918

PATIENT
  Sex: Female

DRUGS (19)
  1. PREDNISONE. [Concomitant]
     Active Substance: PREDNISONE
     Indication: DIFFUSE LARGE B-CELL LYMPHOMA
     Dosage: FIRST CYCLE
     Route: 065
     Dates: start: 20180820
  2. ETOPOSIDE. [Concomitant]
     Active Substance: ETOPOSIDE
     Dosage: THIRD CYCLE
     Route: 065
     Dates: start: 20190702
  3. ETOPOSIDE. [Concomitant]
     Active Substance: ETOPOSIDE
     Dosage: SECOND CYCLE
     Route: 065
     Dates: start: 20190603
  4. CYTARABINE. [Concomitant]
     Active Substance: CYTARABINE
     Dosage: THIRD CYCLE
     Route: 065
     Dates: start: 20190702
  5. METHYLPREDNISOLONE. [Concomitant]
     Active Substance: METHYLPREDNISOLONE
     Dosage: SECOND CYCLE
     Route: 065
     Dates: start: 20190603
  6. METHYLPREDNISOLONE. [Concomitant]
     Active Substance: METHYLPREDNISOLONE
     Dosage: THIRD CYCLE
     Route: 065
     Dates: start: 20190702
  7. CYTARABINE. [Concomitant]
     Active Substance: CYTARABINE
     Dosage: SECOND CYCLE
     Route: 065
     Dates: start: 20190603
  8. CISPLATIN. [Concomitant]
     Active Substance: CISPLATIN
     Indication: DIFFUSE LARGE B-CELL LYMPHOMA
     Dosage: FIRST CYCLE
     Route: 065
     Dates: start: 20190427
  9. CARBOPLATIN. [Concomitant]
     Active Substance: CARBOPLATIN
     Indication: DIFFUSE LARGE B-CELL LYMPHOMA
     Dosage: SECOND CYCLE
     Route: 065
     Dates: start: 20190603
  10. RITUXIMAB. [Suspect]
     Active Substance: RITUXIMAB
     Indication: DIFFUSE LARGE B-CELL LYMPHOMA
     Dosage: FIRST CYCLE (R-CHOP)
     Route: 065
     Dates: start: 20180820
  11. RITUXIMAB. [Suspect]
     Active Substance: RITUXIMAB
     Dosage: FIRST CYCLE (R-ESHAP)
     Route: 065
     Dates: start: 20190427
  12. RITUXIMAB. [Suspect]
     Active Substance: RITUXIMAB
     Dosage: SECOND CYCLE (R-ESHAP)
     Route: 065
     Dates: start: 20190603
  13. RITUXIMAB. [Suspect]
     Active Substance: RITUXIMAB
     Dosage: THIRD CYCLE (R-ESHAP)
     Route: 065
     Dates: start: 20190702
  14. CYCLOPHOSPHAMIDE. [Concomitant]
     Active Substance: CYCLOPHOSPHAMIDE
     Indication: DIFFUSE LARGE B-CELL LYMPHOMA
     Dosage: FIRST CYCLE
     Route: 065
     Dates: start: 20180820
  15. ETOPOSIDE. [Concomitant]
     Active Substance: ETOPOSIDE
     Indication: DIFFUSE LARGE B-CELL LYMPHOMA
     Dosage: FIRST CYCLE
     Route: 065
     Dates: start: 20190427
  16. VINCRISTINE [Concomitant]
     Active Substance: VINCRISTINE
     Indication: DIFFUSE LARGE B-CELL LYMPHOMA
     Dosage: FIRST CYCLE
     Route: 065
     Dates: start: 20180820
  17. METHYLPREDNISOLONE. [Concomitant]
     Active Substance: METHYLPREDNISOLONE
     Indication: DIFFUSE LARGE B-CELL LYMPHOMA
     Dosage: FIRST CYCLE
     Route: 065
     Dates: start: 20190427
  18. CYTARABINE. [Concomitant]
     Active Substance: CYTARABINE
     Indication: DIFFUSE LARGE B-CELL LYMPHOMA
     Dosage: FIRST CYCLE
     Route: 065
     Dates: start: 20190427
  19. CARBOPLATIN. [Concomitant]
     Active Substance: CARBOPLATIN
     Dosage: THIRD CYCLE
     Route: 065
     Dates: start: 20190702

REACTIONS (16)
  - Haemorrhage [Unknown]
  - Urinary tract infection [Not Recovered/Not Resolved]
  - Urinary incontinence [Recovered/Resolved]
  - Febrile neutropenia [Unknown]
  - Retinal haemorrhage [Unknown]
  - Faecaloma [Recovered/Resolved]
  - Neutropenia [Unknown]
  - Platelet count abnormal [Unknown]
  - Leukocytosis [Unknown]
  - Hydronephrosis [Not Recovered/Not Resolved]
  - Gastrointestinal disorder [Recovered/Resolved]
  - Anaemia [Unknown]
  - Septic shock [Unknown]
  - Renal impairment [Unknown]
  - Urinary tract infection bacterial [Unknown]
  - Drug resistance [Unknown]
